FAERS Safety Report 4726202-2 (Version None)
Quarter: 2005Q3

REPORT INFORMATION
  Report Type: 
  Country: None (occurrence: None)
  Receive Date: 20050727
  Receipt Date: 20050719
  Transmission Date: 20060218
  Serious: Yes (Hospitalization)
  Sender: FDA-Public Use
  Company Number: FR-BRISTOL-MYERS SQUIBB COMPANY-13045075

PATIENT
  Age: 51 Year
  Sex: Male

DRUGS (3)
  1. ELISOR TABS [Suspect]
     Route: 048
     Dates: end: 20050510
  2. OROPIVALONE BACITRACINE [Suspect]
     Dates: start: 20050509, end: 20050509
  3. VITASCORBOL [Suspect]
     Dates: start: 20050510, end: 20050510

REACTIONS (1)
  - ACUTE GENERALISED EXANTHEMATOUS PUSTULOSIS [None]
